FAERS Safety Report 7091583-4 (Version None)
Quarter: 2010Q4

REPORT INFORMATION
  Report Type: 
  Country: None (occurrence: None)
  Receive Date: 20101109
  Receipt Date: 20101028
  Transmission Date: 20110411
  Serious: Yes (Other)
  Sender: FDA-Public Use
  Company Number: DE-WATSON-2010-14364

PATIENT
  Age: 7 Year
  Sex: Female

DRUGS (2)
  1. METHYLPREDNISOLONE ACETATE [Suspect]
     Indication: JUVENILE ARTHRITIS
     Dosage: HIGH DOSE
  2. PREDNISONE [Suspect]
     Indication: JUVENILE ARTHRITIS
     Dosage: 40 MG, DAILY
     Route: 048

REACTIONS (1)
  - EPIDURAL LIPOMATOSIS [None]
